FAERS Safety Report 7060890-3 (Version None)
Quarter: 2010Q4

REPORT INFORMATION
  Report Type: 
  Country: None (occurrence: None)
  Receive Date: 20101025
  Receipt Date: 20101012
  Transmission Date: 20110411
  Serious: Yes (Hospitalization)
  Sender: FDA-Public Use
  Company Number: FI-CELGENEUS-055-21880-10101078

PATIENT

DRUGS (5)
  1. REVLIMID [Suspect]
     Indication: MANTLE CELL LYMPHOMA
     Route: 048
     Dates: start: 20100929
  2. BENDAMUSTINE [Suspect]
     Indication: MANTLE CELL LYMPHOMA
     Route: 065
     Dates: start: 20100929
  3. RITUXIMAB [Suspect]
     Indication: MANTLE CELL LYMPHOMA
     Route: 065
     Dates: start: 20100929
  4. AMARYL [Suspect]
     Route: 065
     Dates: start: 20100928
  5. PEGFILGASTRIM [Concomitant]
     Indication: PRODUCT USED FOR UNKNOWN INDICATION
     Route: 065
     Dates: start: 20101004

REACTIONS (1)
  - CIRCULATORY COLLAPSE [None]
